FAERS Safety Report 11401705 (Version 2)
Quarter: 2015Q3

REPORT INFORMATION
  Report Type: Report from Study
  Country: US (occurrence: US)
  Receive Date: 20150821
  Receipt Date: 20150924
  Transmission Date: 20151125
  Serious: Yes (Other)
  Sender: FDA-Public Use
  Company Number: US-ALEXION-A201503074

PATIENT

DRUGS (1)
  1. SOLIRIS [Suspect]
     Active Substance: ECULIZUMAB
     Indication: HAEMOLYTIC URAEMIC SYNDROME
     Dosage: UNK
     Route: 042
     Dates: start: 20150627

REACTIONS (9)
  - Medical device site rash [Unknown]
  - Rash pruritic [Unknown]
  - Rash generalised [Unknown]
  - Insomnia [Unknown]
  - Disturbance in attention [Unknown]
  - Amnesia [Unknown]
  - Blood pressure increased [Unknown]
  - Alopecia [Unknown]
  - Dark circles under eyes [Unknown]

NARRATIVE: CASE EVENT DATE: 20150801
